FAERS Safety Report 13037736 (Version 5)
Quarter: 2017Q1

REPORT INFORMATION
  Report Type: Report from Study
  Country: US (occurrence: US)
  Receive Date: 20161217
  Receipt Date: 20170322
  Transmission Date: 20170428
  Serious: Yes (Other)
  Sender: FDA-Public Use
  Company Number: US-GILEAD-2016-0249350

PATIENT
  Age: 64 Year
  Sex: Female

DRUGS (6)
  1. DILTIAZEM. [Concomitant]
     Active Substance: DILTIAZEM
  2. ORENITRAM [Suspect]
     Active Substance: TREPROSTINIL
     Dosage: 0.5 MG, BID
     Route: 065
  3. ORENITRAM [Suspect]
     Active Substance: TREPROSTINIL
     Indication: PRODUCT USED FOR UNKNOWN INDICATION
     Dosage: 0.5 MG, TID
     Route: 065
  4. ADCIRCA [Concomitant]
     Active Substance: TADALAFIL
  5. AMBRISENTAN [Suspect]
     Active Substance: AMBRISENTAN
     Indication: PRODUCT USED FOR UNKNOWN INDICATION
     Dosage: 10 MG, QD
     Route: 065
  6. ORENITRAM [Suspect]
     Active Substance: TREPROSTINIL
     Dosage: 0.25 UG, BID
     Route: 065

REACTIONS (17)
  - Haemorrhage [Unknown]
  - Abdominal discomfort [Unknown]
  - Hip fracture [Unknown]
  - Upper limb fracture [Unknown]
  - Nausea [Recovered/Resolved]
  - Nervousness [Recovered/Resolved]
  - Gastroenteritis viral [Recovering/Resolving]
  - Diarrhoea [Recovered/Resolved]
  - Abdominal pain [Unknown]
  - Dyspnoea [Not Recovered/Not Resolved]
  - Anxiety [Recovered/Resolved]
  - Hypotension [Not Recovered/Not Resolved]
  - Atrial fibrillation [Unknown]
  - Tremor [Unknown]
  - Feeling abnormal [Recovering/Resolving]
  - Peripheral swelling [Unknown]
  - Flushing [Unknown]

NARRATIVE: CASE EVENT DATE: 201608
